FAERS Safety Report 8880307 (Version 1)
Quarter: 2012Q4

REPORT INFORMATION
  Report Type: 
  Country: US (occurrence: US)
  Receive Date: 20121031
  Receipt Date: 20121031
  Transmission Date: 20130627
  Serious: Yes (Other)
  Sender: FDA-Public Use
  Company Number: PHHY2012US096334

PATIENT
  Age: 86 Year
  Sex: Female

DRUGS (1)
  1. ASCRIPTIN BUFFERED ARTHRITISPAIN CAPLETS [Suspect]
     Indication: PAIN
     Dosage: 3 DF, per day
     Route: 048

REACTIONS (3)
  - Joint dislocation [Recovered/Resolved]
  - Fall [Recovered/Resolved]
  - Incorrect drug administration duration [Unknown]
